FAERS Safety Report 4311963-7 (Version None)
Quarter: 2004Q1

REPORT INFORMATION
  Report Type: 
  Country: None (occurrence: None)
  Receive Date: 20040303
  Receipt Date: 20040218
  Transmission Date: 20041129
  Serious: Yes (Hospitalization)
  Sender: FDA-Public Use
  Company Number: AUS063038

PATIENT
  Age: 54 Year
  Sex: Male
  Weight: 80 kg

DRUGS (1)
  1. NEUPOGEN [Suspect]
     Indication: AGRANULOCYTOSIS
     Dosage: 300 MCG, DAILY, SC
     Route: 058
     Dates: start: 19940101

REACTIONS (4)
  - CHEST WALL PAIN [None]
  - DYSPNOEA EXERTIONAL [None]
  - FEBRILE NEUTROPENIA [None]
  - THERAPEUTIC RESPONSE DECREASED [None]
